FAERS Safety Report 14769608 (Version 4)
Quarter: 2019Q2

REPORT INFORMATION
  Report Type: Spontaneous
  Country: US (occurrence: US)
  Receive Date: 20180417
  Receipt Date: 20190501
  Transmission Date: 20190711
  Serious: Yes (Death, Other)
  Sender: FDA-Public Use
  Company Number: US-ASTRAZENECA-2018SE45773

PATIENT
  Age: 22073 Day
  Sex: Male
  Weight: 54.4 kg

DRUGS (48)
  1. NEXIUM [Suspect]
     Active Substance: ESOMEPRAZOLE MAGNESIUM
     Indication: GASTROOESOPHAGEAL REFLUX DISEASE
     Route: 048
     Dates: start: 2009, end: 2017
  2. LASIX [Concomitant]
     Active Substance: FUROSEMIDE
     Route: 048
     Dates: start: 20141104
  3. TIZANIDINE. [Concomitant]
     Active Substance: TIZANIDINE
     Route: 048
  4. VITAMIN D3 [Concomitant]
     Active Substance: CHOLECALCIFEROL
  5. FERROUS SULFATE. [Concomitant]
     Active Substance: FERROUS SULFATE
  6. NEXIUM [Suspect]
     Active Substance: ESOMEPRAZOLE MAGNESIUM
     Indication: GASTROOESOPHAGEAL REFLUX DISEASE
     Route: 048
     Dates: start: 20140411
  7. PREDNISONE. [Concomitant]
     Active Substance: PREDNISONE
     Route: 048
     Dates: start: 20141104
  8. TERBINAFINE HYDROCHLORIDE. [Concomitant]
     Active Substance: TERBINAFINE HYDROCHLORIDE
     Route: 065
  9. METOPROLOL. [Concomitant]
     Active Substance: METOPROLOL
  10. AMLODIPINE [Concomitant]
     Active Substance: AMLODIPINE BESYLATE
  11. ELIQUIS [Concomitant]
     Active Substance: APIXABAN
  12. CLONIDINE. [Concomitant]
     Active Substance: CLONIDINE
  13. CRESTOR [Concomitant]
     Active Substance: ROSUVASTATIN CALCIUM
     Route: 048
  14. HUMALOG [Concomitant]
     Active Substance: INSULIN LISPRO
     Route: 065
  15. AVAPRO [Concomitant]
     Active Substance: IRBESARTAN
     Route: 048
     Dates: start: 20141104
  16. METOPROLOL. [Concomitant]
     Active Substance: METOPROLOL
     Route: 048
  17. WELCHOL [Concomitant]
     Active Substance: COLESEVELAM HYDROCHLORIDE
     Route: 048
  18. SULFASALAZINE. [Concomitant]
     Active Substance: SULFASALAZINE
  19. MORPHINE [Concomitant]
     Active Substance: MORPHINE
  20. PANTOPRAZOLE [Suspect]
     Active Substance: PANTOPRAZOLE
     Route: 065
  21. ASPIRINE [Concomitant]
     Active Substance: ASPIRIN
     Route: 048
  22. VIAGRA [Concomitant]
     Active Substance: SILDENAFIL CITRATE
     Route: 048
  23. NEXIUM [Suspect]
     Active Substance: ESOMEPRAZOLE MAGNESIUM
     Indication: GASTROOESOPHAGEAL REFLUX DISEASE
     Route: 048
     Dates: start: 20141104, end: 2017
  24. MILK OF MAGNESIA [Concomitant]
     Active Substance: MAGNESIUM HYDROXIDE
     Indication: ANTACID THERAPY
  25. QUINAPRIL. [Concomitant]
     Active Substance: QUINAPRIL
     Route: 048
     Dates: start: 20141104
  26. FUROSEMIDE. [Concomitant]
     Active Substance: FUROSEMIDE
     Route: 048
  27. ROSUVASTATIN. [Concomitant]
     Active Substance: ROSUVASTATIN
  28. PLAQUENIL [Concomitant]
     Active Substance: HYDROXYCHLOROQUINE SULFATE
  29. AMOXICILLIN. [Concomitant]
     Active Substance: AMOXICILLIN
  30. LANTUS SOLOSTAR [Concomitant]
     Active Substance: INSULIN GLARGINE
  31. LOMOTIL [Concomitant]
     Active Substance: ATROPINE SULFATE\DIPHENOXYLATE HYDROCHLORIDE
  32. MEROPENEM. [Concomitant]
     Active Substance: MEROPENEM
  33. HYDROCODONE-ACETAMINOPHEN [Concomitant]
     Active Substance: ACETAMINOPHEN\HYDROCODONE
     Route: 048
  34. ZETIA [Concomitant]
     Active Substance: EZETIMIBE
     Route: 048
     Dates: start: 20141104
  35. FENTANYL. [Concomitant]
     Active Substance: FENTANYL
  36. AZITHROMYCIN ANHYDROUS. [Concomitant]
     Active Substance: AZITHROMYCIN ANHYDROUS
  37. FEXOFENADINE [Concomitant]
     Active Substance: FEXOFENADINE\FEXOFENADINE HYDROCHLORIDE
  38. FUROSEMIDE. [Concomitant]
     Active Substance: FUROSEMIDE
  39. ENBREL [Concomitant]
     Active Substance: ETANERCEPT
  40. AVANDIA [Concomitant]
     Active Substance: ROSIGLITAZONE MALEATE
  41. PRILOSEC [Concomitant]
     Active Substance: OMEPRAZOLE MAGNESIUM
  42. METOPROLOL. [Concomitant]
     Active Substance: METOPROLOL
     Route: 048
  43. GABAPENTIN. [Concomitant]
     Active Substance: GABAPENTIN
     Route: 048
  44. NORCO [Concomitant]
     Active Substance: ACETAMINOPHEN\HYDROCODONE BITARTRATE
  45. PREDNISONE. [Concomitant]
     Active Substance: PREDNISONE
  46. FOSAMAX [Concomitant]
     Active Substance: ALENDRONATE SODIUM
  47. QUINAPRIL. [Concomitant]
     Active Substance: QUINAPRIL
  48. VANCOMYCIN [Concomitant]
     Active Substance: VANCOMYCIN

REACTIONS (6)
  - End stage renal disease [Fatal]
  - Chronic kidney disease [Unknown]
  - Acute kidney injury [Unknown]
  - Azotaemia [Fatal]
  - Renal failure [Unknown]
  - Nephrogenic anaemia [Unknown]

NARRATIVE: CASE EVENT DATE: 20131001
